FAERS Safety Report 8786299 (Version 5)
Quarter: 2013Q1

REPORT INFORMATION
  Report Type: Spontaneous
  Country: US (occurrence: US)
  Receive Date: 20120914
  Receipt Date: 20130103
  Transmission Date: 20140127
  Serious: Yes (Hospitalization, Other)
  Sender: FDA-Public Use
  Company Number: US-PFIZER INC-2012226173

PATIENT
  Age: 54 Year
  Sex: Male
  Weight: 72.56 kg

DRUGS (4)
  1. LYRICA [Suspect]
     Indication: ARTHRITIS
     Dosage: 300 MG, 2X/DAY
     Dates: start: 2010, end: 201212
  2. LYRICA [Suspect]
     Indication: FIBROMYALGIA
  3. LYRICA [Suspect]
     Indication: PAIN
  4. SIMVASTATIN [Concomitant]
     Indication: BLOOD CHOLESTEROL INCREASED
     Dosage: 10 MG, DAILY

REACTIONS (10)
  - Syncope [Unknown]
  - Cardiac stress test abnormal [Unknown]
  - Heat exhaustion [Recovered/Resolved]
  - Orthostatic hypotension [Recovered/Resolved]
  - Dehydration [Recovered/Resolved]
  - Sinus bradycardia [Recovered/Resolved]
  - Neck pain [Unknown]
  - Thrombocytopenia [Unknown]
  - Anaemia [Unknown]
  - Drug ineffective [Not Recovered/Not Resolved]
